FAERS Safety Report 11318380 (Version 2)
Quarter: 2015Q3

REPORT INFORMATION
  Report Type: Spontaneous
  Country: JP (occurrence: JP)
  Receive Date: 20150728
  Receipt Date: 20150804
  Transmission Date: 20151125
  Serious: No
  Sender: FDA-Public Use
  Company Number: JP-ALLERGAN-1514454US

PATIENT
  Age: 12 Year
  Sex: Female

DRUGS (3)
  1. TARIVID [Concomitant]
     Active Substance: OFLOXACIN
     Indication: HORDEOLUM
     Dosage: UNK
  2. FLOMOX [Concomitant]
     Active Substance: CEFCAPENE PIVOXIL HYDROCHLORIDE HYDRATE
     Indication: HORDEOLUM
     Dosage: UNK
  3. GATIFLO [Suspect]
     Active Substance: GATIFLOXACIN
     Indication: HORDEOLUM
     Dosage: 1 GTT, QID
     Route: 047
     Dates: start: 20150630, end: 201507

REACTIONS (1)
  - Anaphylactic reaction [Recovered/Resolved]

NARRATIVE: CASE EVENT DATE: 201507
